FAERS Safety Report 9551156 (Version 1)
Quarter: 2013Q3

REPORT INFORMATION
  Report Type: Spontaneous
  Country: US (occurrence: US)
  Receive Date: 20130925
  Receipt Date: 20130925
  Transmission Date: 20140515
  Serious: Yes (Hospitalization)
  Sender: FDA-Public Use
  Company Number: US-BIOGENIDEC-2013BI089770

PATIENT
  Age: 70 Year
  Sex: Female

DRUGS (6)
  1. TECFIDERA [Suspect]
     Indication: MULTIPLE SCLEROSIS
     Route: 048
     Dates: start: 20130903
  2. ASPIRIN [Concomitant]
  3. ALEVE [Concomitant]
  4. BACLOFEN [Concomitant]
  5. SIMVASTATIN [Concomitant]
  6. GABAPENTIN [Concomitant]

REACTIONS (3)
  - Dyspnoea [Unknown]
  - Faecaloma [Unknown]
  - Constipation [Unknown]
